FAERS Safety Report 5419701-1 (Version None)
Quarter: 2007Q3

REPORT INFORMATION
  Report Type: 
  Country: None (occurrence: None)
  Receive Date: 20070820
  Receipt Date: 20070810
  Transmission Date: 20080115
  Serious: Yes (Hospitalization, Other)
  Sender: FDA-Public Use
  Company Number: FRWYE166113AUG07

PATIENT
  Age: 38 Year
  Sex: Female

DRUGS (5)
  1. EFFEXOR [Suspect]
     Indication: MAJOR DEPRESSION
     Dosage: OVERDOSE AMOUNT UNKNOWN
     Route: 048
     Dates: start: 20070504, end: 20070504
  2. PROZAC [Concomitant]
     Indication: MAJOR DEPRESSION
     Dosage: ONE INTAKE OF AN UNKNOWN DOSE
     Route: 048
     Dates: start: 20070504, end: 20070504
  3. THERALENE [Concomitant]
     Indication: MAJOR DEPRESSION
     Dosage: ONE INTAKE OF AN UNKNOWN DOSE
     Route: 048
     Dates: start: 20070504, end: 20070504
  4. LAROXYL [Suspect]
     Indication: MAJOR DEPRESSION
     Dosage: OVERDOSE AMOUNT UNKNOWN
     Route: 048
     Dates: start: 20070504, end: 20070504
  5. BROMAZEPAM [Concomitant]
     Indication: MAJOR DEPRESSION
     Dosage: ONE INTAKE OF AN UNKNOWN DOSE
     Route: 048
     Dates: start: 20070504, end: 20070504

REACTIONS (7)
  - ASPIRATION [None]
  - COMA [None]
  - DRUG LEVEL INCREASED [None]
  - INTENTIONAL OVERDOSE [None]
  - PROCEDURAL COMPLICATION [None]
  - SUICIDAL IDEATION [None]
  - SUICIDE ATTEMPT [None]
